FAERS Safety Report 11599595 (Version 1)
Quarter: 2015Q4

REPORT INFORMATION
  Report Type: Spontaneous
  Country: US (occurrence: US)
  Receive Date: 20151006
  Receipt Date: 20151006
  Transmission Date: 20160304
  Serious: No
  Sender: FDA-Public Use
  Company Number: US-TEVA-598992USA

PATIENT
  Sex: Female

DRUGS (4)
  1. CLARAVIS [Suspect]
     Active Substance: ISOTRETINOIN
     Route: 048
  2. AMNESTEEM [Suspect]
     Active Substance: ISOTRETINOIN
     Route: 065
  3. AMNESTEEM [Suspect]
     Active Substance: ISOTRETINOIN
     Route: 065
  4. CLARAVIS [Suspect]
     Active Substance: ISOTRETINOIN
     Route: 048

REACTIONS (1)
  - Gastrointestinal disorder [Unknown]
